FAERS Safety Report 21974682 (Version 1)
Quarter: 2023Q1

REPORT INFORMATION
  Report Type: Spontaneous
  Country: US (occurrence: None)
  Receive Date: 20230208
  Receipt Date: 20230208
  Transmission Date: 20230418
  Serious: No
  Sender: FDA-Public Use
  Company Number: None

PATIENT
  Age: 93 Year
  Sex: Female
  Weight: 53.52 kg

DRUGS (17)
  1. CAPECITABINE [Suspect]
     Active Substance: CAPECITABINE
     Indication: Breast cancer female
     Dosage: FREQUENCY : TWICE A DAY;?
     Route: 048
     Dates: start: 20220315
  2. PAXLOVID [Suspect]
     Active Substance: NIRMATRELVIR\RITONAVIR
  3. ACETAMINOPHEN [Concomitant]
     Active Substance: ACETAMINOPHEN
  4. ALBUTEROL SULFATE [Concomitant]
     Active Substance: ALBUTEROL SULFATE
  5. ATENOLOL [Concomitant]
     Active Substance: ATENOLOL
  6. AZITHROMYCIN [Concomitant]
     Active Substance: AZITHROMYCIN
  7. ERGOCALCIFEROL [Concomitant]
     Active Substance: ERGOCALCIFEROL
  8. FEMARA [Concomitant]
     Active Substance: LETROZOLE
  9. LISINOPRIL [Concomitant]
     Active Substance: LISINOPRIL
  10. MAGOX [Concomitant]
  11. MELATONIN [Concomitant]
     Active Substance: MELATONIN
  12. METFORMIN [Concomitant]
     Active Substance: METFORMIN HYDROCHLORIDE
  13. PAXLOVID [Concomitant]
     Active Substance: NIRMATRELVIR\RITONAVIR
  14. PROCHLORPERAZINE [Concomitant]
     Active Substance: PROCHLORPERAZINE
  15. STRATA XRT EXT. GEL [Concomitant]
  16. VERZENIO [Concomitant]
     Active Substance: ABEMACICLIB
  17. VITAMIN D2 [Concomitant]
     Active Substance: ERGOCALCIFEROL

REACTIONS (3)
  - Nausea [None]
  - Dehydration [None]
  - Asthenia [None]
